FAERS Safety Report 7580366-4 (Version None)
Quarter: 2011Q2

REPORT INFORMATION
  Report Type: 
  Country: None (occurrence: None)
  Receive Date: 20110629
  Receipt Date: 20110621
  Transmission Date: 20111010
  Serious: Yes (Death)
  Sender: FDA-Public Use
  Company Number: FR-ROCHE-784802

PATIENT

DRUGS (1)
  1. MIRCERA [Suspect]
     Dosage: DOSE, FORM AND FREQUENCY: UNKNOWN
     Route: 065

REACTIONS (1)
  - DEATH [None]
